FAERS Safety Report 23930039 (Version 3)
Quarter: 2025Q1

REPORT INFORMATION
  Report Type: Spontaneous
  Country: IT (occurrence: IT)
  Receive Date: 20240601
  Receipt Date: 20250106
  Transmission Date: 20250409
  Serious: Yes (Hospitalization, Other)
  Sender: AUROBINDO
  Company Number: IT-HIKMA PHARMACEUTICALS-IT-H14001-23-68232

PATIENT
  Age: 54 Year
  Sex: Male

DRUGS (8)
  1. BORTEZOMIB [Suspect]
     Active Substance: BORTEZOMIB
     Indication: Plasma cell myeloma
     Route: 065
  2. CARFILZOMIB [Suspect]
     Active Substance: CARFILZOMIB
     Indication: Plasma cell myeloma refractory
     Route: 065
     Dates: start: 202209, end: 2023
  3. CYCLOPHOSPHAMIDE [Suspect]
     Active Substance: CYCLOPHOSPHAMIDE
     Indication: Plasma cell myeloma refractory
     Route: 042
     Dates: start: 2023
  4. DEXAMETHASONE [Suspect]
     Active Substance: DEXAMETHASONE
     Indication: Plasma cell myeloma refractory
     Route: 042
     Dates: start: 202209
  5. ELOTUZUMAB [Suspect]
     Active Substance: ELOTUZUMAB
     Indication: Plasma cell myeloma refractory
     Route: 065
     Dates: start: 2023
  6. ISATUXIMAB [Suspect]
     Active Substance: ISATUXIMAB
     Indication: Plasma cell myeloma refractory
     Route: 065
  7. POMALIDOMIDE [Suspect]
     Active Substance: POMALIDOMIDE
     Indication: Plasma cell myeloma refractory
     Route: 065
     Dates: start: 2023
  8. THALIDOMIDE [Suspect]
     Active Substance: THALIDOMIDE
     Indication: Product used for unknown indication
     Route: 065

REACTIONS (13)
  - Neutropenia [Unknown]
  - Pancytopenia [Unknown]
  - Oesophageal candidiasis [Unknown]
  - Anaemia [Unknown]
  - Abdominal pain [Unknown]
  - Factor VII deficiency [Unknown]
  - Pyrexia [Unknown]
  - Drug ineffective [Unknown]
  - Plasma cell leukaemia [Unknown]
  - Thrombocytopenia [Unknown]
  - Coagulopathy [Unknown]
  - Klebsiella infection [Unknown]
  - Splenomegaly [Unknown]

NARRATIVE: CASE EVENT DATE: 20230101
